FAERS Safety Report 11595810 (Version 1)
Quarter: 2015Q4

REPORT INFORMATION
  Report Type: Report from Study
  Country: CA (occurrence: CA)
  Receive Date: 20151006
  Receipt Date: 20151006
  Transmission Date: 20160304
  Serious: Yes (Other)
  Sender: FDA-Public Use
  Company Number: CA-ROCHE-1638519

PATIENT
  Sex: Female

DRUGS (1)
  1. ACTEMRA [Suspect]
     Active Substance: TOCILIZUMAB
     Indication: RHEUMATOID ARTHRITIS
     Route: 058
     Dates: start: 20150821

REACTIONS (6)
  - Tooth infection [Not Recovered/Not Resolved]
  - Skin swelling [Not Recovered/Not Resolved]
  - Postoperative wound infection [Not Recovered/Not Resolved]
  - Vascular rupture [Not Recovered/Not Resolved]
  - Erythema [Not Recovered/Not Resolved]
  - Purulent discharge [Not Recovered/Not Resolved]
